FAERS Safety Report 17891702 (Version 5)
Quarter: 2024Q3

REPORT INFORMATION
  Report Type: Spontaneous
  Country: US (occurrence: US)
  Receive Date: 20200612
  Receipt Date: 20240816
  Transmission Date: 20241016
  Serious: Yes (Hospitalization, Other)
  Sender: TEVA
  Company Number: US-TEVA-2020-US-1508898

PATIENT
  Age: 70 Year
  Sex: Female
  Weight: 89.8 kg

DRUGS (57)
  1. HYDROCHLOROTHIAZIDE\VALSARTAN [Suspect]
     Active Substance: HYDROCHLOROTHIAZIDE\VALSARTAN
     Indication: Hypertension
     Dosage: DOSAGE TEXT: VALSARTAN 320 MG/ HYDROCHLOROTHIAZIDE 25 MG?TEVA
     Route: 065
     Dates: start: 20121001, end: 20150401
  2. TOPROL XL [Concomitant]
     Active Substance: METOPROLOL SUCCINATE
     Indication: Hypertension
     Dosage: 50 MG 90 TAB XL TABLE?TAKE 1TAB BY .MOUTH.DAILY. - ORAL
     Route: 048
     Dates: start: 20160907, end: 20170110
  3. TOPROL XL [Concomitant]
     Active Substance: METOPROLOL SUCCINATE
     Indication: Hypertension
     Dosage: 50 MG 90 TAB XL TABLE?TAKE 1TAB BY .MOUTH.DAILY. - ORAL
     Route: 048
     Dates: start: 20170110, end: 20170510
  4. TOPROL XL [Concomitant]
     Active Substance: METOPROLOL SUCCINATE
     Indication: Hypertension
     Dosage: 50 MG 90 TAB XL TABLE?TAKE 1TAB BY .MOUTH.DAILY. - ORAL
     Route: 048
     Dates: start: 20170920, end: 20180125
  5. TOPROL XL [Concomitant]
     Active Substance: METOPROLOL SUCCINATE
     Indication: Hypertension
     Dosage: 50 MG 90 TAB XL TABLE?TAKE 1TAB BY .MOUTH.DAILY. - ORAL
     Route: 048
     Dates: start: 20181003, end: 20190206
  6. TOPROL XL [Concomitant]
     Active Substance: METOPROLOL SUCCINATE
     Indication: Hypertension
     Dosage: 50 MG 90 TAB XL TABLE?TAKE 1TAB BY .MOUTH.DAILY. - ORAL
     Route: 048
     Dates: start: 20191017, end: 20200219
  7. TOPROL XL [Concomitant]
     Active Substance: METOPROLOL SUCCINATE
     Indication: Hypertension
     Dosage: 50 MG 90 TAB XL TABLE?TAKE 1TAB BY .MOUTH.DAILY. - ORAL
     Route: 048
     Dates: start: 20201120, end: 20210326
  8. TOPROL XL [Concomitant]
     Active Substance: METOPROLOL SUCCINATE
     Indication: Hypertension
     Dosage: 50 MG 90 TAB XL TABLE?TAKE 1TAB BY .MOUTH.DAILY. - ORAL
     Route: 048
     Dates: start: 20160601, end: 20160907
  9. LIPITOR [Concomitant]
     Active Substance: ATORVASTATIN CALCIUM
     Indication: Hyperlipidaemia
     Dosage: 10 MG TABLET?TAKE 1 TAB BY MOUTH NIGHTLY - ORAL
     Route: 048
     Dates: start: 20160907, end: 20170110
  10. LIPITOR [Concomitant]
     Active Substance: ATORVASTATIN CALCIUM
     Indication: Hyperlipidaemia
     Dosage: 10 MG TABLET?TAKE 1 TAB BY MOUTH DAILY.NIGHTLY - ORAL
     Route: 048
     Dates: start: 20170110, end: 20170510
  11. LIPITOR [Concomitant]
     Active Substance: ATORVASTATIN CALCIUM
     Indication: Hyperlipidaemia
     Dosage: 10 MG TABLET?TAKE 1 TAB BY MOUTH DAILY. NIGHTLY ORAL
     Route: 048
     Dates: start: 20170920, end: 20180125
  12. LIPITOR [Concomitant]
     Active Substance: ATORVASTATIN CALCIUM
     Indication: Hyperlipidaemia
     Dosage: 10 MG TABLET?TAKE 1 TAB BY MOUTH DAILY. NIGHTLY ORAL
     Route: 048
     Dates: start: 20181003, end: 20190206
  13. LIPITOR [Concomitant]
     Active Substance: ATORVASTATIN CALCIUM
     Indication: Hyperlipidaemia
     Dosage: 10 MG TABLET?TAKE 1 TAB BY MOUTH DAILY. NIGHTLY ORAL
     Route: 048
     Dates: start: 20191017, end: 20200219
  14. LIPITOR [Concomitant]
     Active Substance: ATORVASTATIN CALCIUM
     Indication: Hyperlipidaemia
     Dosage: 10 MG TABLET?TAKE 1 TAB BY MOUTH DAILY. NIGHTLY ORAL
     Route: 048
     Dates: start: 20201120, end: 20210326
  15. LIPITOR [Concomitant]
     Active Substance: ATORVASTATIN CALCIUM
     Indication: Hyperlipidaemia
     Dosage: 10 MG TABLET?TAKE 1 TAB BY MOUTH DAILY. - ORAL
     Route: 048
     Dates: start: 20160601, end: 20160907
  16. VITAMINS [Concomitant]
     Active Substance: VITAMINS
     Indication: Vitamin supplementation
     Route: 065
  17. LASIX [Concomitant]
     Active Substance: FUROSEMIDE
     Dosage: TAKE 1 TAB BY MOUTH DAILY
     Route: 048
     Dates: start: 20181003, end: 20190206
  18. LASIX [Concomitant]
     Active Substance: FUROSEMIDE
     Dosage: TAKE 1 TAB BY MOUTH DAILY
     Route: 048
     Dates: start: 20191017, end: 20200219
  19. LASIX [Concomitant]
     Active Substance: FUROSEMIDE
     Dosage: TAKE 1 TAB BY MOUTH DAILY
     Route: 048
     Dates: start: 20201120, end: 20210326
  20. DIOVAN HCT [Suspect]
     Active Substance: HYDROCHLOROTHIAZIDE\VALSARTAN
     Indication: Hypertension
     Dosage: DOSAGE TEXT: VALSARTAN 320 MG/ HYDROCHLOROTHIAZIDE 25 MG?TAKE 1 TAB BY MOUTH DAILY.
     Route: 048
     Dates: start: 20160601, end: 20160907
  21. DIOVAN HCT [Suspect]
     Active Substance: HYDROCHLOROTHIAZIDE\VALSARTAN
     Indication: Hypertension
     Dosage: DOSAGE TEXT: VALSARTAN 320 MG/ HYDROCHLOROTHIAZIDE 25 MG?TAKE 1 TAB BY MOUTH DAILY.
     Route: 048
     Dates: start: 20160907, end: 20170110
  22. DIOVAN HCT [Suspect]
     Active Substance: HYDROCHLOROTHIAZIDE\VALSARTAN
     Indication: Hypertension
     Dosage: DOSAGE TEXT: VALSARTAN 320 MG/ HYDROCHLOROTHIAZIDE 25 MG?TAKE 1 TAB BY MOUTH DAILY.
     Route: 048
     Dates: start: 20170110, end: 20170510
  23. DIOVAN HCT [Suspect]
     Active Substance: HYDROCHLOROTHIAZIDE\VALSARTAN
     Indication: Hypertension
     Dosage: DOSAGE TEXT: VALSARTAN 320 MG/ HYDROCHLOROTHIAZIDE 25 MG?TAKE 1 TAB BY MOUTH DAILY.
     Route: 048
     Dates: start: 20170920, end: 20180125
  24. DIOVAN HCT [Suspect]
     Active Substance: HYDROCHLOROTHIAZIDE\VALSARTAN
     Indication: Hypertension
     Dosage: DOSAGE TEXT: VALSARTAN 320 MG/ HYDROCHLOROTHIAZIDE 25 MG?NOVARTIS
     Route: 065
     Dates: start: 20090127, end: 20121007
  25. HYDROCHLOROTHIAZIDE\VALSARTAN [Suspect]
     Active Substance: HYDROCHLOROTHIAZIDE\VALSARTAN
     Indication: Hypertension
     Dosage: DOSAGE TEXT: VALSARTAN 320 MG/ HYDROCHLOROTHIAZIDE 25 MG?ACETERIS
     Route: 065
     Dates: start: 20150330, end: 20180820
  26. ASPIRIN [Concomitant]
     Active Substance: ASPIRIN
     Indication: Transient ischaemic attack
     Dosage: DELAYED-RELEASE 81 MQ TABLET?TAKE BY MOUTH DAILY
     Route: 065
     Dates: end: 20160810
  27. ASPIRIN [Concomitant]
     Active Substance: ASPIRIN
     Indication: Transient ischaemic attack
     Dosage: TAKE 81 MG BY MOUTH DAILY. TAKE DOS PER ANESTHESIA PROTOCOL. - ORAL
     Route: 048
     Dates: end: 20190918
  28. PROTONIX [Concomitant]
     Active Substance: PANTOPRAZOLE SODIUM
     Indication: Product used for unknown indication
     Dosage: 40 MG TABLET?TAKE 1 TAB BY MOUTH DAILY. - ORAL
     Route: 048
     Dates: start: 20160601, end: 20160907
  29. PROTONIX [Concomitant]
     Active Substance: PANTOPRAZOLE SODIUM
     Indication: Product used for unknown indication
     Dosage: 40 MG TABLET?TAKE 1 TAB BY MOUTH DAILY. - ORAL
     Route: 048
     Dates: start: 20170110, end: 20170510
  30. PROTONIX [Concomitant]
     Active Substance: PANTOPRAZOLE SODIUM
     Indication: Product used for unknown indication
     Dosage: 40 MG TABLET?TAKE 1 TAB BY MOUTH DAILY. - ORAL
     Route: 048
     Dates: start: 20170920, end: 20180125
  31. PROTONIX [Concomitant]
     Active Substance: PANTOPRAZOLE SODIUM
     Indication: Product used for unknown indication
     Dosage: 40 MG TABLET?TAKE 1 TAB BY MOUTH DAILY. - ORAL
     Route: 048
     Dates: start: 20181003, end: 20190206
  32. PROTONIX [Concomitant]
     Active Substance: PANTOPRAZOLE SODIUM
     Indication: Product used for unknown indication
     Dosage: 40 MG TABLET?TAKE 1 TAB BY MOUTH DAILY. - ORAL
     Route: 048
     Dates: start: 20191017, end: 20200219
  33. PROTONIX [Concomitant]
     Active Substance: PANTOPRAZOLE SODIUM
     Indication: Product used for unknown indication
     Dosage: 40 MG TABLET?TAKE 1 TAB BY MOUTH DAILY. - ORAL
     Route: 048
     Dates: start: 20201120, end: 20210326
  34. NEURONTIN [Concomitant]
     Active Substance: GABAPENTIN
     Dosage: 300 MG CAPSULE?TAKE 1 CAP BY MOUTH TWO (2) TIMES A DAY. - ORAL
     Route: 048
     Dates: start: 20160601, end: 20160907
  35. NEURONTIN [Concomitant]
     Active Substance: GABAPENTIN
     Dosage: 300 MG CAPSULE?TAKE 1 CAP BY MOUTH NIGHTLY
     Route: 048
     Dates: start: 20160912, end: 20170117
  36. MINERALS\VITAMINS [Concomitant]
     Active Substance: MINERALS\VITAMINS
     Dosage: TAKE BY MOUTH DAILY. - ORAL
     Route: 048
     Dates: end: 20170119
  37. K-DUR, KLOR-CON [Concomitant]
     Dosage: 20 MEQ TABLET TAKE 1 TAB BY MOUTH TWO (2) TIMES A DAY - ORAL
     Route: 048
     Dates: start: 20160601, end: 20160707
  38. Influenza High Dose Vaccine [Concomitant]
     Indication: Product used for unknown indication
     Route: 065
     Dates: start: 20151001
  39. Influenza High Dose Vaccine [Concomitant]
     Indication: Product used for unknown indication
     Route: 065
     Dates: start: 20160907
  40. Influenza High Dose Vaccine [Concomitant]
     Indication: Product used for unknown indication
     Route: 065
     Dates: start: 20170920
  41. Influenza High Dose Vaccine [Concomitant]
     Indication: Product used for unknown indication
     Route: 065
     Dates: start: 20181003
  42. Influenza Vaccine (Tri) [Concomitant]
     Indication: Product used for unknown indication
     Dosage: ADJUVANTED (}65 YRS FLUAD TRI 90653)
     Dates: start: 20191017
  43. Influenza, High-dose, [Concomitant]
     Indication: Product used for unknown indication
     Dosage: QUADRIVALENT (}65 YRS FLUZONE?HIGH DOSE QUAD 90662)
     Route: 065
     Dates: start: 20200924
  44. Pneumococcal Polysaccharide [Concomitant]
     Indication: Product used for unknown indication
     Dosage: (PPSV-23)
     Route: 065
     Dates: start: 20170920
  45. VOLTAREN [Concomitant]
     Active Substance: DICLOFENAC SODIUM
     Indication: Product used for unknown indication
     Dosage: 1% GEL APPLY 4 GRAMS TO AFFECTED AREA 4 TIMES A DAY
     Route: 065
     Dates: start: 20160601, end: 20160707
  46. VOLTAREN [Concomitant]
     Active Substance: DICLOFENAC SODIUM
     Indication: Product used for unknown indication
     Dosage: APPLY 4 GRAMS TO AFFECTED AREA 4 TIMES A DAY
     Dates: start: 20160803, end: 20161227
  47. VOLTAREN XR [Concomitant]
     Active Substance: DICLOFENAC SODIUM
     Indication: Product used for unknown indication
     Dosage: TAKE 1_TAB BY MOUTH DAILY. - ORAL
     Route: 048
     Dates: start: 20160601, end: 20160707
  48. ROBAXIN [Concomitant]
     Active Substance: METHOCARBAMOL
     Indication: Product used for unknown indication
     Dosage: 750MG TABLET
     Route: 065
  49. CIPRO [Concomitant]
     Active Substance: CIPROFLOXACIN HYDROCHLORIDE
     Indication: Product used for unknown indication
     Dosage: TAKE_L TAB_BY.MOUTH (2)_TJRNES A.DAY
     Route: 048
     Dates: start: 20160616, end: 20160707
  50. CIPRO [Concomitant]
     Active Substance: CIPROFLOXACIN HYDROCHLORIDE
     Indication: Product used for unknown indication
     Dosage: TAKE_L TAB_BY.MOUTH (2)_TJRNES A.DAY
     Route: 048
     Dates: start: 20171101, end: 20171106
  51. meioxicam [Concomitant]
     Dosage: TAKE 7.5 MG BY MOUTH DAILY. - ORAL
     Route: 048
     Dates: start: 20170914, end: 20180718
  52. ASPIRIN [Concomitant]
     Active Substance: ASPIRIN
     Indication: Product used for unknown indication
     Dosage: DELAYED-RELEASE 81 MG TABLET?TAKE BY MOUTH DAILY. - ORAL?TAKE DOS PER ANESTHESIA PROTOCOL.
     Route: 048
     Dates: start: 20190918
  53. ANTIVERT [Concomitant]
     Active Substance: MECLIZINE HYDROCHLORIDE
     Indication: Dizziness
     Dosage: TAKE 1 TAB BY MOUTH THREE (3) TIMES DAILY
     Route: 048
     Dates: start: 20190429, end: 20191017
  54. BENICAR [Concomitant]
     Active Substance: OLMESARTAN MEDOXOMIL
     Indication: Product used for unknown indication
     Dosage: TAKE 1 TAB BY MOUTH DAILY
     Route: 048
     Dates: start: 20190318, end: 20190606
  55. Covid-19, MODERNA, Mrna [Concomitant]
     Indication: Product used for unknown indication
     Dosage: LNP-S, PF, 100MCQ/0.SML
     Route: 065
     Dates: start: 20210303
  56. Covid-19, MODERNA, Mrna [Concomitant]
     Indication: Product used for unknown indication
     Dosage: LNP^S, PF, 100MCG/0.SML
     Route: 065
     Dates: start: 20210203
  57. Pneumococcal Conjugate [Concomitant]
     Indication: Product used for unknown indication
     Dosage: (PCV-13)
     Route: 065

REACTIONS (1)
  - Bladder cancer [Not Recovered/Not Resolved]

NARRATIVE: CASE EVENT DATE: 20160901
